FAERS Safety Report 9368810 (Version 1)
Quarter: 2013Q2

REPORT INFORMATION
  Report Type: Spontaneous
  Country: US (occurrence: US)
  Receive Date: 20130626
  Receipt Date: 20130626
  Transmission Date: 20140414
  Serious: Yes (Hospitalization)
  Sender: FDA-Public Use
  Company Number: US-B.I. PHARMACEUTICALS,INC./RIDGEFIELD-2013-BI-17772BP

PATIENT
  Age: 57 Year
  Sex: Female
  Weight: 45 kg

DRUGS (9)
  1. MICARDIS [Suspect]
     Indication: HYPERTENSION
     Dosage: 80 MG
     Route: 048
     Dates: start: 2001
  2. PRIMIDONE [Concomitant]
  3. DIVALPROEX [Concomitant]
  4. LEVOTHYROXINE [Concomitant]
  5. FISH OIL [Concomitant]
     Dosage: 1 ANZ
     Route: 048
  6. TOVIAZ [Concomitant]
  7. FUROSEMIDE [Concomitant]
     Dosage: 20 MG
     Route: 048
  8. GABAPENTIN [Concomitant]
     Dosage: 200 MG
     Route: 048
  9. MELOXICAM [Concomitant]

REACTIONS (2)
  - Abasia [Recovered/Resolved]
  - Haematoma [Recovered/Resolved]
